FAERS Safety Report 8501904-0 (Version None)
Quarter: 2012Q3

REPORT INFORMATION
  Report Type: 
  Country: None (occurrence: None)
  Receive Date: 20120711
  Receipt Date: 20120706
  Transmission Date: 20120928
  Serious: Yes (Hospitalization, Other)
  Sender: FDA-Public Use
  Company Number: PHHY2011JP68204

PATIENT
  Sex: Female
  Weight: 32 kg

DRUGS (9)
  1. ARICEPT ODT [Concomitant]
  2. TOREMIFENE [Concomitant]
  3. FEMARA [Suspect]
     Dosage: 7.5 MG, UNK
     Route: 048
  4. GASMOTIN [Concomitant]
     Indication: GASTRITIS
     Dosage: 2 DF, UNK
     Route: 048
     Dates: start: 20091222
  5. FEMARA [Suspect]
     Indication: BREAST CANCER
     Dosage: 2.5 MG, TID
     Route: 048
     Dates: start: 20080306, end: 20110704
  6. ALENDRONATE SODIUM [Suspect]
     Indication: OSTEOPOROSIS
     Dosage: 5 MG, DAILY
     Dates: start: 20090219
  7. FEMARA [Suspect]
     Dosage: 5 MG, WEEKLY
     Dates: start: 20090219
  8. RABEPRAZOLE SODIUM [Concomitant]
     Indication: GASTROOESOPHAGEAL REFLUX DISEASE
     Dosage: 1 DF, UNK
     Route: 048
     Dates: start: 20091222
  9. MAGMITT [Concomitant]
     Indication: CONSTIPATION
     Dosage: 3 DF, UNK
     Route: 048
     Dates: start: 20090818, end: 20090915

REACTIONS (6)
  - PLATELET COUNT DECREASED [None]
  - FAECES DISCOLOURED [None]
  - ANAEMIA [None]
  - RED BLOOD CELL COUNT DECREASED [None]
  - IDIOPATHIC THROMBOCYTOPENIC PURPURA [None]
  - HAEMATOCRIT DECREASED [None]
